FAERS Safety Report 18119423 (Version 1)
Quarter: 2020Q3

REPORT INFORMATION
  Report Type: Spontaneous
  Country: US (occurrence: US)
  Receive Date: 20200805
  Receipt Date: 20200805
  Transmission Date: 20201103
  Serious: Yes (Other)
  Sender: FDA-Public Use
  Company Number: None

PATIENT
  Age: 30 Year
  Sex: Male

DRUGS (11)
  1. BUMETANIDE. [Concomitant]
     Active Substance: BUMETANIDE
  2. BENZOBATATE [Concomitant]
  3. PRADAXA [Concomitant]
     Active Substance: DABIGATRAN ETEXILATE MESYLATE
  4. ONDANSETRON [Concomitant]
     Active Substance: ONDANSETRON
  5. CYCLOBENZAPRINE. [Concomitant]
     Active Substance: CYCLOBENZAPRINE
     Route: 048
     Dates: start: 201905
  6. METOLAZONE. [Concomitant]
     Active Substance: METOLAZONE
  7. LORAZEPAM. [Concomitant]
     Active Substance: LORAZEPAM
  8. OPSUMIT [Suspect]
     Active Substance: MACITENTAN
     Indication: PULMONARY ARTERIAL HYPERTENSION
     Route: 048
     Dates: start: 201905
  9. SILDENAFIL. [Concomitant]
     Active Substance: SILDENAFIL
  10. AMIODARONE [Concomitant]
     Active Substance: AMIODARONE
  11. POTASSIUM CHLORIDE. [Concomitant]
     Active Substance: POTASSIUM CHLORIDE

REACTIONS (2)
  - Hypokalaemia [None]
  - Dizziness [None]

NARRATIVE: CASE EVENT DATE: 20200712
